FAERS Safety Report 9461078 (Version 1)
Quarter: 2013Q3

REPORT INFORMATION
  Report Type: Spontaneous
  Country: GB (occurrence: GB)
  Receive Date: 20130816
  Receipt Date: 20130816
  Transmission Date: 20140515
  Serious: Yes (Other)
  Sender: FDA-Public Use
  Company Number: GB-009507513-1308GBR005358

PATIENT
  Sex: Male

DRUGS (2)
  1. JANUVIA [Suspect]
     Indication: BLOOD GLUCOSE
     Dosage: 100 MG, QPM
  2. INSULIN [Concomitant]
     Indication: BLOOD GLUCOSE
     Dosage: UNK

REACTIONS (3)
  - Cerebrovascular accident [Unknown]
  - Gastrointestinal tube insertion [Unknown]
  - Drug dose omission [Unknown]
